FAERS Safety Report 8138016-4 (Version None)
Quarter: 2012Q1

REPORT INFORMATION
  Report Type: 
  Country: None (occurrence: None)
  Receive Date: 20120215
  Receipt Date: 20120206
  Transmission Date: 20120608
  Serious: Yes (Hospitalization)
  Sender: FDA-Public Use
  Company Number: IT-PFIZER INC-2012020072

PATIENT
  Age: 68 Year
  Sex: Female

DRUGS (9)
  1. PARACETAMOL [Concomitant]
     Dosage: 1 UNIT DOSE DAILY
     Route: 042
     Dates: start: 20111216, end: 20111220
  2. ESOMEPRAZOLE MAGNESIUM [Concomitant]
     Dosage: 1 UNIT DOSE
     Route: 042
  3. FUROSEMIDE [Concomitant]
     Dosage: 1 UNIT DOSE
     Route: 042
  4. CEFAZOLIN [Suspect]
     Indication: PRODUCT USED FOR UNKNOWN INDICATION
     Dosage: 1 UNIT DOSE DAILY
     Route: 042
     Dates: start: 20111214, end: 20111218
  5. LEVOFLOXACIN [Suspect]
     Indication: PRODUCT USED FOR UNKNOWN INDICATION
     Dosage: 750 MG DAILY
     Route: 042
     Dates: start: 20111215, end: 20111218
  6. PROPOFOL [Concomitant]
     Indication: SEDATION
  7. IMIPENEM AND CILASTATIN SODIUM [Suspect]
     Indication: PRODUCT USED FOR UNKNOWN INDICATION
     Dosage: 2 UNITS DOSE DAILY
     Route: 042
     Dates: start: 20111214, end: 20111214
  8. ALBUMIN TANNATE [Concomitant]
     Dosage: UNK
     Dates: start: 20111215, end: 20111217
  9. VANCOMYCIN HCL [Suspect]
     Indication: PRODUCT USED FOR UNKNOWN INDICATION
     Dosage: 2 G DAILY
     Route: 042
     Dates: start: 20111214, end: 20111219

REACTIONS (5)
  - DERMATITIS [None]
  - SKIN OEDEMA [None]
  - BLISTER [None]
  - TOXIC EPIDERMAL NECROLYSIS [None]
  - SKIN DISORDER [None]
